FAERS Safety Report 5035981-9 (Version None)
Quarter: 2006Q2

REPORT INFORMATION
  Report Type: 
  Country: None (occurrence: None)
  Receive Date: 20060526
  Receipt Date: 20060127
  Transmission Date: 20061013
  Serious: Yes (Other)
  Sender: FDA-Public Use
  Company Number: 221335

PATIENT
  Age: 40 Year
  Sex: Female

DRUGS (1)
  1. RAPTIVA [Suspect]
     Indication: PSORIASIS
     Dosage: 60 MG, 1/WEEK
     Dates: start: 20051015

REACTIONS (1)
  - GASTROENTERITIS [None]
